FAERS Safety Report 8357194-5 (Version None)
Quarter: 2012Q2

REPORT INFORMATION
  Report Type: 
  Country: None (occurrence: None)
  Receive Date: 20120510
  Receipt Date: 20120501
  Transmission Date: 20120825
  Serious: Yes (Hospitalization, Other)
  Sender: FDA-Public Use
  Company Number: 2012SP023226

PATIENT
  Sex: Male

DRUGS (2)
  1. PEG-INTRON [Suspect]
     Indication: HEPATITIS C
     Dates: start: 20020104, end: 20021206
  2. RIBAVIRIN [Suspect]
     Indication: HEPATITIS C
     Dates: start: 20020104, end: 20021206

REACTIONS (7)
  - HEPATIC CIRRHOSIS [None]
  - PAIN [None]
  - ABDOMINAL PAIN [None]
  - PLATELET COUNT DECREASED [None]
  - SEPSIS [None]
  - PYREXIA [None]
  - COLITIS [None]
